FAERS Safety Report 19663608 (Version 1)
Quarter: 2021Q3

REPORT INFORMATION
  Report Type: Spontaneous
  Country: JP (occurrence: JP)
  Receive Date: 20210806
  Receipt Date: 20210806
  Transmission Date: 20211014
  Serious: Yes (Other)
  Sender: FDA-Public Use
  Company Number: JP-AMGEN-JPNSP2021119213

PATIENT
  Age: 78 Year
  Sex: Male

DRUGS (10)
  1. RANMARK [Suspect]
     Active Substance: DENOSUMAB
     Indication: METASTASES TO BONE
     Dosage: 120 MILLIGRAM, Q4WK
     Route: 058
  2. DOCETAXEL. [Concomitant]
     Active Substance: DOCETAXEL
     Indication: PROSTATE CANCER METASTATIC
     Dosage: 70 MG/M2, ONCE EVERY 3 WK
     Route: 042
  3. PEGFILGRASTIM [Concomitant]
     Active Substance: PEGFILGRASTIM
     Dosage: UNK
     Route: 065
  4. CABAZITAXEL [Suspect]
     Active Substance: CABAZITAXEL
     Dosage: 12.5 MG/M2, ONCE EVERY 4 WK
     Route: 065
  5. CABAZITAXEL [Suspect]
     Active Substance: CABAZITAXEL
     Indication: PROSTATE CANCER METASTATIC
     Dosage: 20 MG/M2, ONCE EVERY 3 WK
     Route: 065
  6. CABAZITAXEL [Suspect]
     Active Substance: CABAZITAXEL
     Dosage: 15 MG/M2, ONCE EVERY 3 WK
     Route: 065
  7. CABAZITAXEL [Suspect]
     Active Substance: CABAZITAXEL
     Dosage: 17.5 MG/M2, ONCE EVERY 3 WK
     Route: 065
  8. CABAZITAXEL [Suspect]
     Active Substance: CABAZITAXEL
     Dosage: 12.5 MG/M2, ONCE EVERY 3 WK
     Route: 065
  9. RANMARK [Suspect]
     Active Substance: DENOSUMAB
     Dosage: 120 MILLIGRAM, Q4WK
     Route: 058
  10. STEROIDS [Concomitant]
     Active Substance: UNSPECIFIED INGREDIENT
     Dosage: UNK
     Route: 065

REACTIONS (5)
  - Chest injury [Unknown]
  - Neutropenia [Unknown]
  - Thrombocytopenia [Unknown]
  - Osteonecrosis [Unknown]
  - Osteonecrosis of jaw [Unknown]
